FAERS Safety Report 8286642-4 (Version None)
Quarter: 2012Q2

REPORT INFORMATION
  Report Type: 
  Country: None (occurrence: None)
  Receive Date: 20120416
  Receipt Date: 20120404
  Transmission Date: 20120825
  Serious: Yes (Hospitalization)
  Sender: FDA-Public Use
  Company Number: AU-SHIRE-SPV1-2012-00207

PATIENT
  Sex: Male

DRUGS (2)
  1. ANTIHISTAMINES [Concomitant]
     Indication: PREMEDICATION
     Dosage: UNK, UNKNOWN
     Route: 065
  2. ELAPRASE [Suspect]
     Indication: MUCOPOLYSACCHARIDOSIS II
     Dosage: UNK, UNKNOWN
     Dates: start: 20090101

REACTIONS (2)
  - ANAPHYLACTOID REACTION [None]
  - INFUSION RELATED REACTION [None]
